FAERS Safety Report 5307695-9 (Version None)
Quarter: 2007Q2

REPORT INFORMATION
  Report Type: 
  Country: None (occurrence: None)
  Receive Date: 20070425
  Receipt Date: 20070418
  Transmission Date: 20071010
  Serious: Yes (Hospitalization, Other)
  Sender: FDA-Public Use
  Company Number: US-PFIZER INC-2006101685

PATIENT
  Sex: Male

DRUGS (2)
  1. BEXTRA [Suspect]
     Indication: BACK PAIN
  2. VIOXX [Suspect]
     Route: 048
     Dates: start: 19990601

REACTIONS (1)
  - CEREBROVASCULAR ACCIDENT [None]
